FAERS Safety Report 8141833-8 (Version None)
Quarter: 2012Q1

REPORT INFORMATION
  Report Type: 
  Country: None (occurrence: None)
  Receive Date: 20120216
  Receipt Date: 20120206
  Transmission Date: 20120608
  Serious: Yes (Hospitalization)
  Sender: FDA-Public Use
  Company Number: US-ELI_LILLY_AND_COMPANY-US201111001771

PATIENT
  Sex: Female

DRUGS (12)
  1. LISINOPRIL HCT                     /01613901/ [Concomitant]
  2. FORTEO [Suspect]
     Indication: OSTEOPOROSIS
     Dosage: 20 UG, QD
     Dates: start: 20110915
  3. MULTI-VITAMINS [Concomitant]
  4. CALCIUM [Concomitant]
     Dosage: 600 MG, BID
  5. TENORMIN [Concomitant]
  6. VITAMIN D [Concomitant]
     Dosage: 400 MG, BID
  7. ASPIRIN [Concomitant]
     Dosage: 81 MG, UNK
  8. FLONASE [Concomitant]
  9. ASPIRIN [Concomitant]
  10. MAG-OX [Concomitant]
  11. ATENOLOL [Suspect]
  12. TYLENOL (CAPLET) [Concomitant]
     Indication: ARTHRITIS
     Dosage: 1000 MG, QD

REACTIONS (1)
  - COLITIS ISCHAEMIC [None]
